FAERS Safety Report 9807495 (Version 1)
Quarter: 2014Q1

REPORT INFORMATION
  Report Type: Spontaneous
  Country: US (occurrence: US)
  Receive Date: 20140110
  Receipt Date: 20140110
  Transmission Date: 20141002
  Serious: No
  Sender: FDA-Public Use
  Company Number: US-SA-2013SA096248

PATIENT
  Sex: Female
  Weight: 63.5 kg

DRUGS (3)
  1. PLAVIX [Suspect]
     Indication: STENT PLACEMENT
     Dosage: TAKEN FROM: 9 YEARS AGO
     Route: 065
  2. PLAVIX [Suspect]
     Indication: MYOCARDIAL INFARCTION
     Dosage: TAKEN FROM: 9 YEARS AGO
     Route: 065
  3. CLOPIDOGREL BISULFATE [Suspect]
     Route: 065

REACTIONS (1)
  - Skin discolouration [Unknown]
